FAERS Safety Report 12392968 (Version 1)
Quarter: 2016Q2

REPORT INFORMATION
  Report Type: Spontaneous
  Country: US (occurrence: US)
  Receive Date: 20160523
  Receipt Date: 20160523
  Transmission Date: 20160815
  Serious: No
  Sender: FDA-Public Use
  Company Number: US-PFIZER INC-2016234565

PATIENT
  Sex: Female

DRUGS (2)
  1. QUINAPRIL. [Suspect]
     Active Substance: QUINAPRIL
     Indication: HYPERTENSION
     Dosage: 10 MG, UNK
  2. QUINAPRIL. [Suspect]
     Active Substance: QUINAPRIL
     Dosage: 25 MG, UNK

REACTIONS (1)
  - Drug ineffective [Unknown]
